FAERS Safety Report 7608907-9 (Version None)
Quarter: 2011Q3

REPORT INFORMATION
  Report Type: 
  Country: None (occurrence: None)
  Receive Date: 20110714
  Receipt Date: 20110702
  Transmission Date: 20111222
  Serious: Yes (Hospitalization)
  Sender: FDA-Public Use
  Company Number: US-PFIZER INC-2011148302

PATIENT
  Sex: Male

DRUGS (3)
  1. GEMCITABINE [Suspect]
     Indication: BLADDER CANCER
     Dosage: CYCLIC
     Dates: start: 20100624
  2. CISPLATIN [Suspect]
     Indication: BLADDER CANCER
     Dosage: CYCLIC
     Dates: start: 20100624
  3. SUNITINIB MALATE [Suspect]
     Indication: BLADDER CANCER
     Dosage: CYCLIC
     Route: 048
     Dates: start: 20100624

REACTIONS (1)
  - CELLULITIS OF MALE EXTERNAL GENITAL ORGAN [None]
